FAERS Safety Report 9184091 (Version 1)
Quarter: 2013Q1

REPORT INFORMATION
  Report Type: Spontaneous
  Country: US (occurrence: US)
  Receive Date: 20130322
  Receipt Date: 20130322
  Transmission Date: 20140127
  Serious: Yes (Other)
  Sender: FDA-Public Use
  Company Number: US-BRISTOL-MYERS SQUIBB COMPANY-16446700

PATIENT
  Age: 85 Year
  Sex: Male
  Weight: 63.94 kg

DRUGS (1)
  1. ERBITUX [Suspect]
     Indication: HEAD AND NECK CANCER
     Dosage: 2ND TREATMENT:29FEB12
     Dates: start: 20120222

REACTIONS (1)
  - Rash [Unknown]
